FAERS Safety Report 25425820 (Version 1)
Quarter: 2025Q2

REPORT INFORMATION
  Report Type: Report from Study
  Country: US (occurrence: US)
  Receive Date: 20250611
  Receipt Date: 20250611
  Transmission Date: 20250717
  Serious: Yes (Other)
  Sender: MALLINCKRODT
  Company Number: US-MALLINCKRODT-MNK202500987

PATIENT
  Sex: Male

DRUGS (2)
  1. CORTICOTROPIN [Suspect]
     Active Substance: CORTICOTROPIN
     Indication: Uveitis
     Dates: start: 20230309
  2. JARDIANCE [Suspect]
     Active Substance: EMPAGLIFLOZIN
     Indication: Blood glucose increased

REACTIONS (12)
  - Spinal stenosis [Unknown]
  - Arthritis [Unknown]
  - Weight decreased [Unknown]
  - Hypoaesthesia [Unknown]
  - Appetite disorder [Unknown]
  - Blood glucose decreased [Unknown]
  - Blood testosterone decreased [Unknown]
  - Red blood cell count increased [Unknown]
  - Pollakiuria [Unknown]
  - Vitamin D decreased [Unknown]
  - Headache [Unknown]
  - Blood glucose increased [Unknown]
